FAERS Safety Report 20151938 (Version 1)
Quarter: 2021Q4

REPORT INFORMATION
  Report Type: Spontaneous
  Country: US (occurrence: None)
  Receive Date: 20211204
  Receipt Date: 20211204
  Transmission Date: 20220303
  Serious: Yes (Disabling)
  Sender: FDA-Public Use
  Company Number: None

PATIENT
  Age: 64 Year
  Sex: Female
  Weight: 67.5 kg

DRUGS (5)
  1. SUDAFED [Suspect]
     Active Substance: PSEUDOEPHEDRINE HYDROCHLORIDE
     Indication: Sinus congestion
     Dosage: OTHER QUANTITY : 96 TABLET(S);?FREQUENCY : AS NEEDED;?
     Route: 048
  2. CRESTOR [Concomitant]
     Active Substance: ROSUVASTATIN CALCIUM
  3. ASPIRIN [Concomitant]
     Active Substance: ASPIRIN
  4. CETIRIZINE HYDROCHLORIDE [Concomitant]
     Active Substance: CETIRIZINE HYDROCHLORIDE
  5. PSEUDOEPHEDRINE [Concomitant]
     Active Substance: PSEUDOEPHEDRINE

REACTIONS (2)
  - Product blister packaging issue [None]
  - Product packaging difficult to open [None]

NARRATIVE: CASE EVENT DATE: 20211031
